FAERS Safety Report 6069480-2 (Version None)
Quarter: 2009Q1

REPORT INFORMATION
  Report Type: 
  Country: None (occurrence: None)
  Receive Date: 20090206
  Receipt Date: 20090206
  Transmission Date: 20090719
  Serious: Yes (Death, Life-Threatening, Hospitalization, Disabling, Other)
  Sender: FDA-Public Use
  Company Number: DE-WYE-H05479508

PATIENT
  Sex: Male
  Weight: 72 kg

DRUGS (6)
  1. CYCLOSPORINE [Suspect]
     Indication: PROPHYLAXIS AGAINST TRANSPLANT REJECTION
     Dosage: UNSPECIFIED
     Route: 048
     Dates: start: 20061216, end: 20080410
  2. CYCLOSPORINE [Suspect]
     Route: 048
     Dates: start: 20080720
  3. BENZBROMARONE [Concomitant]
     Indication: HYPERURICAEMIA
  4. DECORTIN [Concomitant]
     Indication: PROPHYLAXIS AGAINST TRANSPLANT REJECTION
     Dosage: ^2.5 1-0-0^
  5. FRAXIPARIN [Concomitant]
     Indication: THROMBOSIS PROPHYLAXIS
     Dosage: 0.3 (UNITS/FREQUENCY UNSPECIFIED)
     Dates: start: 20080807
  6. URSODEOXYCHOLATE SODIUM [Concomitant]
     Indication: BILE DUCT STENOSIS
     Dosage: UNSPECIFIED

REACTIONS (4)
  - METASTASES TO LUNG [None]
  - MULTI-ORGAN FAILURE [None]
  - PNEUMONIA [None]
  - RENAL FAILURE ACUTE [None]
